FAERS Safety Report 9296428 (Version 1)
Quarter: 2013Q2

REPORT INFORMATION
  Report Type: Spontaneous
  Country: GB (occurrence: GB)
  Receive Date: 20130517
  Receipt Date: 20130517
  Transmission Date: 20140414
  Serious: Yes (Death)
  Sender: FDA-Public Use
  Company Number: GB-ACTELION-A-CH2013-83226

PATIENT
  Age: 52 Year
  Sex: 0

DRUGS (2)
  1. TRACLEER [Suspect]
     Indication: PRODUCT USED FOR UNKNOWN INDICATION
     Dosage: 125 MG, BID
     Route: 048
  2. SILDENAFIL [Concomitant]
     Dosage: UNK

REACTIONS (1)
  - Death [Fatal]
